FAERS Safety Report 8874770 (Version 1)
Quarter: 2012Q4

REPORT INFORMATION
  Report Type: 
  Country: US (occurrence: US)
  Receive Date: 20121023
  Receipt Date: 20121023
  Transmission Date: 20130627
  Serious: No
  Sender: FDA-Public Use
  Company Number: US-PFIZER INC-2012258834

PATIENT
  Age: 25 Year
  Sex: Female
  Weight: 63.49 kg

DRUGS (2)
  1. CLINDAMYCIN HCL [Suspect]
     Indication: INFECTION
     Dosage: UNK
     Route: 048
     Dates: start: 2012
  2. CLINDAMYCIN PHOSPHATE [Suspect]
     Indication: INFECTION
     Dosage: UNK
     Route: 042
     Dates: start: 2012, end: 2012

REACTIONS (1)
  - Rash maculo-papular [Unknown]
